FAERS Safety Report 6830994-6 (Version None)
Quarter: 2010Q3

REPORT INFORMATION
  Report Type: 
  Country: None (occurrence: None)
  Receive Date: 20100712
  Receipt Date: 20100710
  Transmission Date: 20110219
  Serious: Yes (Life-Threatening, Hospitalization, Other)
  Sender: FDA-Public Use
  Company Number: US-JNJFOC-20090900074

PATIENT
  Age: 34 Year

DRUGS (2)
  1. FENTANYL CITRATE [Suspect]
     Indication: DRUG ABUSE
     Route: 048
  2. NALOXONE [Suspect]
     Indication: PRODUCT USED FOR UNKNOWN INDICATION
     Route: 065

REACTIONS (8)
  - ACUTE LUNG INJURY [None]
  - DRUG ABUSE [None]
  - DRUG WITHDRAWAL SYNDROME [None]
  - HYPOXIA [None]
  - INTENTIONAL DRUG MISUSE [None]
  - LOSS OF CONSCIOUSNESS [None]
  - NARCOTIC INTOXICATION [None]
  - TROPONIN INCREASED [None]
